FAERS Safety Report 11695000 (Version 1)
Quarter: 2015Q4

REPORT INFORMATION
  Report Type: Spontaneous
  Country: US (occurrence: US)
  Receive Date: 20151103
  Receipt Date: 20151103
  Transmission Date: 20160304
  Serious: Yes (Disabling)
  Sender: FDA-Public Use
  Company Number: US-BRISTOL-MYERS SQUIBB COMPANY-BMS-2015-075374

PATIENT
  Sex: Male

DRUGS (2)
  1. BARACLUDE [Suspect]
     Active Substance: ENTECAVIR
     Indication: PRODUCT USED FOR UNKNOWN INDICATION
     Dosage: 20 ML, UNK
     Route: 065
  2. BARACLUDE [Suspect]
     Active Substance: ENTECAVIR
     Indication: PRODUCT USED FOR UNKNOWN INDICATION
     Route: 065

REACTIONS (13)
  - Fatigue [Unknown]
  - Abdominal discomfort [Unknown]
  - Palpitations [Unknown]
  - Dizziness [Unknown]
  - Lethargy [Unknown]
  - Depression [Unknown]
  - Pruritus [Unknown]
  - Insomnia [Unknown]
  - Malaise [Unknown]
  - Hypersensitivity [Unknown]
  - Skin disorder [Unknown]
  - Dyspnoea [Unknown]
  - Heart rate irregular [Unknown]
